FAERS Safety Report 6993195-7 (Version None)
Quarter: 2010Q3

REPORT INFORMATION
  Report Type: 
  Country: None (occurrence: None)
  Receive Date: 20100917
  Receipt Date: 20090908
  Transmission Date: 20110219
  Serious: Yes (Other)
  Sender: FDA-Public Use
  Company Number: US-ASTRAZENECA-2009UW13314

PATIENT
  Age: 43 Year
  Sex: Male
  Weight: 129.3 kg

DRUGS (5)
  1. SEROQUEL [Suspect]
     Indication: SCHIZOPHRENIA
     Route: 048
     Dates: start: 20010101, end: 20080228
  2. SEROQUEL [Suspect]
     Indication: DEPRESSION
     Route: 048
     Dates: start: 20010101, end: 20080228
  3. SEROQUEL [Suspect]
     Route: 048
     Dates: start: 20080228
  4. SEROQUEL [Suspect]
     Route: 048
     Dates: start: 20080228
  5. GEODON [Concomitant]
     Dosage: 20 MG-60 MG
     Dates: start: 20080618, end: 20090511

REACTIONS (5)
  - BLOOD CHOLESTEROL INCREASED [None]
  - DIABETES MELLITUS [None]
  - HYPERLIPIDAEMIA [None]
  - SPINAL CORD DISORDER [None]
  - TYPE 2 DIABETES MELLITUS [None]
